FAERS Safety Report 5347098-4 (Version None)
Quarter: 2007Q2

REPORT INFORMATION
  Report Type: 
  Country: None (occurrence: None)
  Receive Date: 20070604
  Receipt Date: 20070523
  Transmission Date: 20071010
  Serious: Yes (Hospitalization)
  Sender: FDA-Public Use
  Company Number: 2007VX001491

PATIENT
  Age: 58 Year
  Sex: Female

DRUGS (8)
  1. INFERGEN [Suspect]
     Indication: HEPATITIS C
     Dosage: P UG; QD; SC
     Route: 058
  2. RIBAVIRIN [Concomitant]
  3. SYNTHROID [Concomitant]
  4. LEXAPRO [Concomitant]
  5. MILK THISTLE [Concomitant]
  6. PANTOPRAZOLE SODIUM [Concomitant]
  7. XANAX [Concomitant]
  8. OXYCODONE HCL [Concomitant]

REACTIONS (3)
  - ABDOMINAL PAIN UPPER [None]
  - LARGE INTESTINAL ULCER [None]
  - MYOCARDIAL ISCHAEMIA [None]
